FAERS Safety Report 10025842 (Version 2)
Quarter: 2014Q2

REPORT INFORMATION
  Report Type: Spontaneous
  Country: GB (occurrence: None)
  Receive Date: 20140314
  Receipt Date: 20140508
  Transmission Date: 20141212
  Serious: Yes (Disabling)
  Sender: FDA-Public Use
  Company Number: AUR-APL-2014-02606

PATIENT
  Age: 37 Year
  Sex: Female

DRUGS (4)
  1. OLANZAPINE [Suspect]
     Indication: SCHIZOPHRENIA
     Route: 048
     Dates: start: 20131217
  2. CLOZARIL [Suspect]
     Indication: SCHIZOPHRENIA
     Route: 048
     Dates: start: 20050407, end: 201312
  3. VALPROIC ACID (VALPROIC ACID) [Suspect]
     Indication: AFFECTIVE DISORDER
     Route: 048
     Dates: end: 201312
  4. CLOZAPINE (CLOZAPINE) [Concomitant]

REACTIONS (2)
  - Alopecia [None]
  - Anxiety [None]
